FAERS Safety Report 6017152-2 (Version None)
Quarter: 2008Q4

REPORT INFORMATION
  Report Type: 
  Country: None (occurrence: None)
  Receive Date: 20081223
  Receipt Date: 20081216
  Transmission Date: 20090506
  Serious: Yes (Hospitalization)
  Sender: FDA-Public Use
  Company Number: JP-BRISTOL-MYERS SQUIBB COMPANY-14449896

PATIENT
  Age: 69 Year
  Sex: Female
  Weight: 55 kg

DRUGS (14)
  1. ERBITUX [Suspect]
     Indication: COLORECTAL CANCER RECURRENT
     Dosage: 1ST INF: 18NOV08(400MG/M2 ONCE WEEKLY) 2ND INF: 27NOV08(250MG/M2 1 IN 1 WEEK)
     Route: 042
     Dates: start: 20081118
  2. IRINOTECAN HCL [Suspect]
     Indication: COLORECTAL CANCER RECURRENT
     Dosage: 1ST INF: 18NOV08(120MG/M2) 2ND INF: 27NOV08(120MG/M2)
     Route: 042
     Dates: start: 20081118
  3. VENA [Concomitant]
     Indication: PREMEDICATION
     Route: 048
  4. DECADRON [Concomitant]
     Indication: PREMEDICATION
     Dosage: 8MG IV AS PREMEDICATION 4MG IV(21NOV08-22NOV08)
     Route: 042
     Dates: start: 20081121, end: 20081122
  5. GRANISETRON [Concomitant]
     Indication: PREMEDICATION
     Route: 042
     Dates: start: 20081126
  6. GRANISETRON [Concomitant]
     Indication: PROPHYLAXIS OF NAUSEA AND VOMITING
     Route: 042
     Dates: start: 20081126
  7. SAXIZON [Concomitant]
     Route: 042
     Dates: start: 20081128, end: 20081130
  8. AMARYL [Concomitant]
     Indication: DIABETES MELLITUS
     Route: 048
     Dates: start: 20080622
  9. SELBEX [Concomitant]
     Indication: GASTRITIS
     Route: 048
     Dates: start: 20080622
  10. MAGMITT [Concomitant]
     Indication: CONSTIPATION
     Route: 048
     Dates: start: 20080622
  11. LASIX [Concomitant]
     Indication: HYPERTENSION
     Route: 048
     Dates: start: 20080622
  12. ADALAT CC [Concomitant]
     Indication: HYPERTENSION
     Route: 048
     Dates: start: 20080622
  13. ZYRTEC [Concomitant]
     Indication: PRURITUS
     Route: 048
     Dates: start: 20080622
  14. ALOSENN [Concomitant]
     Indication: CONSTIPATION
     Route: 048
     Dates: start: 20080622

REACTIONS (4)
  - ANAEMIA [None]
  - ANOREXIA [None]
  - DIARRHOEA [None]
  - WHITE BLOOD CELL COUNT DECREASED [None]
